FAERS Safety Report 15740993 (Version 1)
Quarter: 2018Q4

REPORT INFORMATION
  Report Type: Spontaneous
  Country: US (occurrence: US)
  Receive Date: 20181219
  Receipt Date: 20181219
  Transmission Date: 20190205
  Serious: Yes (Other)
  Sender: FDA-Public Use
  Company Number: US-SAKK-2018SA342185AA

PATIENT
  Age: 10 Year
  Sex: Male

DRUGS (1)
  1. LUMIZYME [Suspect]
     Active Substance: ALGLUCOSIDASE ALFA
     Dosage: UNK
     Route: 041
     Dates: start: 2009

REACTIONS (5)
  - Venous occlusion [Unknown]
  - Mobility decreased [Unknown]
  - Superior vena cava syndrome [Unknown]
  - Postoperative thrombosis [Unknown]
  - Scoliosis [Unknown]

NARRATIVE: CASE EVENT DATE: 201806
